FAERS Safety Report 9815343 (Version 3)
Quarter: 2014Q1

REPORT INFORMATION
  Report Type: Report from Study
  Country: DE (occurrence: DE)
  Receive Date: 20140114
  Receipt Date: 20140314
  Transmission Date: 20141002
  Serious: Yes (Life-Threatening)
  Sender: FDA-Public Use
  Company Number: DE-009507513-1401DEU002283

PATIENT
  Sex: 0

DRUGS (1)
  1. GONADOTROPIN, CHORIONIC [Suspect]
     Indication: CHRONIC GRAFT VERSUS HOST DISEASE
     Dosage: 187 IU, UNK

REACTIONS (2)
  - Hypertriglyceridaemia [Unknown]
  - Off label use [Unknown]
